FAERS Safety Report 25602006 (Version 1)
Quarter: 2025Q3

REPORT INFORMATION
  Report Type: Spontaneous
  Country: EU (occurrence: EU)
  Receive Date: 20250724
  Receipt Date: 20250724
  Transmission Date: 20251021
  Serious: Yes (Hospitalization, Other)
  Sender: ALEXION PHARMACEUTICALS
  Company Number: EU-MYLANLABS-2025M1057825

PATIENT
  Age: 71 Year
  Sex: Female

DRUGS (6)
  1. BUDESONIDE\FORMOTEROL FUMARATE [Suspect]
     Active Substance: BUDESONIDE\FORMOTEROL FUMARATE
     Route: 065
  2. EPINEPHRINE [Suspect]
     Active Substance: EPINEPHRINE
     Indication: Product used for unknown indication
  3. EPINEPHRINE [Suspect]
     Active Substance: EPINEPHRINE
  4. EPINEPHRINE [Suspect]
     Active Substance: EPINEPHRINE
  5. HYDROCORTISONE [Suspect]
     Active Substance: HYDROCORTISONE
     Indication: Product used for unknown indication
  6. CLEMASTINE [Suspect]
     Active Substance: CLEMASTINE
     Indication: Product used for unknown indication

REACTIONS (2)
  - Kounis syndrome [Unknown]
  - Drug ineffective [Unknown]
